FAERS Safety Report 26205184 (Version 1)
Quarter: 2025Q4

REPORT INFORMATION
  Report Type: Spontaneous
  Country: US (occurrence: US)
  Receive Date: 20251228
  Receipt Date: 20251228
  Transmission Date: 20260118
  Serious: No
  Sender: SANOFI AVENTIS
  Company Number: US-SA-2025SA382431

PATIENT
  Age: 12 Year
  Sex: Female
  Weight: 40.82 kg

DRUGS (7)
  1. DUPIXENT [Suspect]
     Active Substance: DUPILUMAB
     Indication: Dermatitis atopic
     Dosage: 300 MG, QOW
     Route: 058
  2. ALBUTEROL SULFATE [Concomitant]
     Active Substance: ALBUTEROL SULFATE
  3. NEFFY [Concomitant]
     Active Substance: EPINEPHRINE
  4. XYZAL [Concomitant]
     Active Substance: LEVOCETIRIZINE DIHYDROCHLORIDE
  5. MUPIROCIN [Concomitant]
     Active Substance: MUPIROCIN
  6. EPIPEN [Concomitant]
     Active Substance: EPINEPHRINE
  7. AUVI-Q [Concomitant]
     Active Substance: EPINEPHRINE

REACTIONS (2)
  - Injection site pain [Unknown]
  - Incorrect dose administered [Unknown]
